FAERS Safety Report 8500507-1 (Version None)
Quarter: 2012Q3

REPORT INFORMATION
  Report Type: 
  Country: None (occurrence: None)
  Receive Date: 20120705
  Receipt Date: 20120705
  Transmission Date: 20120928
  Serious: Yes (Hospitalization)
  Sender: FDA-Public Use
  Company Number: None

PATIENT
  Age: 62 Year
  Sex: Male
  Weight: 107.7 kg

DRUGS (2)
  1. LISINOPRIL AND HYDROCHLOROTHIAZIDE [Suspect]
     Indication: HYPERTENSION
     Dosage: MG   PO
     Route: 048
     Dates: start: 20111012, end: 20120514
  2. SULINDAC [Suspect]
     Indication: PAIN
     Dosage: MG  PO
     Route: 048
     Dates: start: 20120405, end: 20120514

REACTIONS (2)
  - ANGIOEDEMA [None]
  - LIP SWELLING [None]
